FAERS Safety Report 10597532 (Version 1)
Quarter: 2014Q4

REPORT INFORMATION
  Report Type: Spontaneous
  Country: US (occurrence: None)
  Receive Date: 20141120
  Receipt Date: 20141120
  Transmission Date: 20150529
  Serious: Yes (Other)
  Sender: FDA-Public Use
  Company Number: None

PATIENT
  Age: 74 Year
  Sex: Male
  Weight: 115 kg

DRUGS (6)
  1. GLUCOSAMINE [Concomitant]
     Active Substance: GLUCOSAMINE
  2. FLUTICASONE PROP [Concomitant]
  3. FINASTERIDE - 5 MG TABLET (PROSCAR) [Suspect]
     Active Substance: FINASTERIDE
     Indication: PROSTATOMEGALY
     Dosage: 5 MG, 20, MOUTH
     Route: 048
     Dates: start: 20140326, end: 20140426
  4. DILTIAZEM HYDROCHLORIDE EXTENDED RELEASE [Concomitant]
     Active Substance: DILTIAZEM HYDROCHLORIDE
  5. MULTIVITAM [Concomitant]
  6. SAW PALMETTO [Concomitant]
     Active Substance: SAW PALMETTO

REACTIONS (5)
  - Sexual dysfunction [None]
  - Breast pain [None]
  - Libido decreased [None]
  - Breast mass [None]
  - Breast tenderness [None]

NARRATIVE: CASE EVENT DATE: 20140426
